FAERS Safety Report 7963633 (Version 3)
Quarter: 2014Q1

REPORT INFORMATION
  Report Type: Spontaneous
  Country: US (occurrence: US)
  Receive Date: 20110527
  Receipt Date: 20140213
  Transmission Date: 20141002
  Serious: Yes (Hospitalization, Disabling, Other)
  Sender: FDA-Public Use
  Company Number: US-BAYER-2011-045219

PATIENT
  Age: 35 Year
  Sex: Female
  Weight: 100 kg

DRUGS (3)
  1. YAZ [Suspect]
     Indication: ACNE
     Dosage: UNK
     Dates: start: 200705, end: 200902
  2. YAZ [Suspect]
     Indication: PREMENSTRUAL DYSPHORIC DISORDER
  3. YAZ [Suspect]
     Indication: PREMENSTRUAL SYNDROME

REACTIONS (6)
  - Cystitis interstitial [None]
  - Pain [None]
  - Anxiety [None]
  - Anhedonia [None]
  - Abdominal pain [None]
  - Cholecystitis chronic [None]
